FAERS Safety Report 15283949 (Version 1)
Quarter: 2018Q4

REPORT INFORMATION
  Report Type: Spontaneous
  Country: US (occurrence: US)
  Receive Date: 20180816
  Receipt Date: 20180816
  Transmission Date: 20190204
  Serious: Yes (Hospitalization)
  Sender: FDA-Public Use
  Company Number: US-PROCTER_AND_GAMBLE-GS18092302

PATIENT
  Age: 28 Year
  Sex: Male

DRUGS (1)
  1. OLAY SPF/UV PROTECTION NOS [Suspect]
     Active Substance: AVOBENZONE\HOMOSALATE\OCTINOXATE\OCTISALATE\OCTOCRYLENE\OXYBENZONE\TITANIUM DIOXIDE\ZINC OXIDE
     Dosage: JUST A LITTLE DAB WITH FINGER AND ON FACE
     Route: 061
     Dates: end: 201808

REACTIONS (4)
  - Product physical issue [Unknown]
  - Rash [Recovering/Resolving]
  - Skin disorder [Recovering/Resolving]
  - Dry skin [Recovering/Resolving]
